FAERS Safety Report 12728134 (Version 1)
Quarter: 2016Q3

REPORT INFORMATION
  Report Type: Spontaneous
  Country: US (occurrence: US)
  Receive Date: 20160907
  Receipt Date: 20160907
  Transmission Date: 20161109
  Serious: Yes (Disabling)
  Sender: FDA-Public Use
  Company Number: None

PATIENT
  Age: 50 Year
  Sex: Female
  Weight: 63 kg

DRUGS (3)
  1. CIPRO [Suspect]
     Active Substance: CIPROFLOXACIN HYDROCHLORIDE
     Indication: CYSTITIS
     Route: 048
  2. MEDICINES FOR ANXIETY AND DEPRESSION [Concomitant]
  3. CIPRO [Suspect]
     Active Substance: CIPROFLOXACIN HYDROCHLORIDE
     Indication: ABDOMINAL INFECTION
     Route: 048

REACTIONS (9)
  - Tremor [None]
  - Asthenia [None]
  - Rotator cuff syndrome [None]
  - Pain [None]
  - Micturition disorder [None]
  - Eye pain [None]
  - Tinnitus [None]
  - Tendonitis [None]
  - Fibromyalgia [None]
